FAERS Safety Report 5991925-4 (Version None)
Quarter: 2008Q4

REPORT INFORMATION
  Report Type: 
  Country: None (occurrence: None)
  Receive Date: 20081202
  Receipt Date: 20071024
  Transmission Date: 20090506
  Serious: Yes (Other)
  Sender: FDA-Public Use
  Company Number: WAES 0706USA03743

PATIENT
  Age: 85 Year
  Sex: Female

DRUGS (7)
  1. FOSAMAX [Suspect]
     Indication: OSTEOPOROSIS
     Dosage: 70 MG/PO ; 70 MG/PO ; 70 MG/PO ; 70 MG/PO
     Route: 048
     Dates: start: 20050822, end: 20051123
  2. FOSAMAX [Suspect]
     Indication: OSTEOPOROSIS
     Dosage: 70 MG/PO ; 70 MG/PO ; 70 MG/PO ; 70 MG/PO
     Route: 048
     Dates: start: 20060530
  3. FOSAMAX [Suspect]
     Indication: OSTEOPOROSIS
     Dosage: 70 MG/PO ; 70 MG/PO ; 70 MG/PO ; 70 MG/PO
     Route: 048
     Dates: start: 20061005
  4. FOSAMAX [Suspect]
     Indication: OSTEOPOROSIS
     Dosage: 70 MG/PO ; 70 MG/PO ; 70 MG/PO ; 70 MG/PO
     Route: 048
     Dates: start: 20070114
  5. PREVACID [Concomitant]
  6. PRILOSEC [Concomitant]
  7. TRAMADOL HYDROCHLORIDE [Concomitant]

REACTIONS (5)
  - ANXIETY [None]
  - ARTHRITIS [None]
  - ASTHMA [None]
  - DEPRESSION [None]
  - OSTEONECROSIS [None]
